FAERS Safety Report 4369380-X (Version None)
Quarter: 2004Q2

REPORT INFORMATION
  Report Type: 
  Country: None (occurrence: None)
  Receive Date: 20040527
  Receipt Date: 20040510
  Transmission Date: 20050107
  Serious: Yes (Hospitalization, Other)
  Sender: FDA-Public Use
  Company Number: USA040567093

PATIENT
  Age: 78 Year
  Sex: Male
  Weight: 103 kg

DRUGS (4)
  1. HUMALOG [Suspect]
     Indication: DIABETES MELLITUS
     Dosage: 110 U DAY
  2. HUMULIN 70/30 [Suspect]
     Indication: DIABETES MELLITUS
  3. METFORMIN [Concomitant]
  4. GLYBURIDE [Concomitant]

REACTIONS (9)
  - BLINDNESS [None]
  - CATARACT [None]
  - CEREBROVASCULAR ACCIDENT [None]
  - CONVULSION [None]
  - DEMENTIA ALZHEIMER'S TYPE [None]
  - HYPERTENSION [None]
  - INJECTION SITE HAEMORRHAGE [None]
  - MACULAR DEGENERATION [None]
  - PHARMACEUTICAL PRODUCT COMPLAINT [None]
